FAERS Safety Report 9120640 (Version 2)
Quarter: 2013Q2

REPORT INFORMATION
  Report Type: Spontaneous
  Country: US (occurrence: US)
  Receive Date: 20130226
  Receipt Date: 20130521
  Transmission Date: 20140414
  Serious: Yes (Hospitalization, Other)
  Sender: FDA-Public Use
  Company Number: US-BAYER-2012-131888

PATIENT
  Age: 36 Year
  Sex: Female
  Weight: 61 kg

DRUGS (4)
  1. FLINTSTONES GUMMIES [Suspect]
     Indication: ASTHENIA
     Dosage: 2 DF, QD
     Route: 048
     Dates: start: 201201, end: 201212
  2. FLINTSTONES GUMMIES [Suspect]
     Indication: ACNE
  3. ALEVE LIQUID GELS [Suspect]
  4. MIDOL EXTENDED RELIEF CAPLET [Suspect]
     Dosage: 2 DF, Q1MON

REACTIONS (10)
  - Off label use [None]
  - Coordination abnormal [Recovered/Resolved]
  - Hand-eye coordination impaired [Recovered/Resolved]
  - Mental impairment [Recovered/Resolved]
  - Grip strength decreased [Recovered/Resolved]
  - Asthenia [Not Recovered/Not Resolved]
  - Motor dysfunction [Recovered/Resolved]
  - Hypoaesthesia [Recovered/Resolved]
  - Pain in extremity [None]
  - Dizziness [None]
